FAERS Safety Report 7535667-2 (Version None)
Quarter: 2011Q2

REPORT INFORMATION
  Report Type: 
  Country: None (occurrence: None)
  Receive Date: 20110602
  Receipt Date: 20110524
  Transmission Date: 20111010
  Serious: Yes (Hospitalization)
  Sender: FDA-Public Use
  Company Number: WAES 1105USA03780

PATIENT
  Age: 68 Year
  Sex: Female

DRUGS (4)
  1. MAXIPIME [Concomitant]
  2. INVANZ [Suspect]
     Indication: PNEUMONIA
     Dates: start: 20110425
  3. SPRYCEL [Concomitant]
  4. GENTAMICIN [Suspect]
     Indication: PNEUMONIA

REACTIONS (7)
  - LOBAR PNEUMONIA [None]
  - ABDOMINAL PAIN LOWER [None]
  - TUBULOINTERSTITIAL NEPHRITIS [None]
  - ASTHENIA [None]
  - DIALYSIS [None]
  - RENAL FAILURE ACUTE [None]
  - MUSCLE HAEMORRHAGE [None]
